FAERS Safety Report 10684108 (Version 2)
Quarter: 2014Q4

REPORT INFORMATION
  Report Type: Report from Study
  Country: US (occurrence: US)
  Receive Date: 20141231
  Receipt Date: 20141231
  Transmission Date: 20150529
  Serious: Yes (Death)
  Sender: FDA-Public Use
  Company Number: US-ROCHE-444659

PATIENT
  Age: 59 Year
  Sex: Male

DRUGS (3)
  1. LEVOFLOXACIN. [Concomitant]
     Active Substance: LEVOFLOXACIN
     Route: 065
  2. BEVACIZUMAB [Suspect]
     Active Substance: BEVACIZUMAB
     Indication: NEOPLASM MALIGNANT
     Route: 042
  3. AMG 386 [Suspect]
     Active Substance: TREBANANIB
     Indication: NEOPLASM MALIGNANT
     Dosage: DRUG REPORTED AS AMG 386
     Route: 042

REACTIONS (4)
  - Haemorrhage [Fatal]
  - Pyrexia [Fatal]
  - Haemoptysis [Fatal]
  - Pallor [Fatal]

NARRATIVE: CASE EVENT DATE: 20060307
